FAERS Safety Report 8273918-X (Version None)
Quarter: 2012Q2

REPORT INFORMATION
  Report Type: 
  Country: None (occurrence: None)
  Receive Date: 20120411
  Receipt Date: 20120330
  Transmission Date: 20120825
  Serious: Yes (Hospitalization, Other)
  Sender: FDA-Public Use
  Company Number: US-ELI_LILLY_AND_COMPANY-US201204000347

PATIENT
  Sex: Female

DRUGS (26)
  1. FORTEO [Suspect]
     Dosage: 20 UG, QD
     Route: 065
     Dates: start: 20120327
  2. CRESTOR [Concomitant]
     Dosage: 40 MG, UNK
  3. OXYGEN [Concomitant]
     Dosage: 2 L, UNK
  4. GABAPENTIN [Concomitant]
     Dosage: 300 MG, UNK
  5. ALBUTEROL [Concomitant]
  6. TRAZODONE HCL [Concomitant]
     Dosage: 150 MG, UNK
  7. LORAZEPAM [Concomitant]
     Dosage: 0.05 MG, UNK
  8. CARAFATE [Concomitant]
     Dosage: 1 G, UNK
  9. DIOVAN [Concomitant]
     Dosage: 160 MG, UNK
  10. HYDROCODONE BITARTRATE [Concomitant]
  11. SYNTHROID [Concomitant]
     Dosage: 50 UG, UNK
  12. EFEXOR XR                          /01233802/ [Concomitant]
     Dosage: 75 MG, UNK
  13. PROMETHAZINE [Concomitant]
     Dosage: 25 MG, UNK
  14. ASPIRIN [Concomitant]
     Dosage: 81 MG, UNK
  15. ADVAIR DISKUS 100/50 [Concomitant]
     Dosage: UNK
  16. VENTOLIN [Concomitant]
     Route: 065
  17. ZOFRAN [Concomitant]
     Dosage: 8 MG, UNK
  18. FORTEO [Suspect]
     Indication: OSTEOPOROSIS
     Dosage: 20 UG, QD
     Route: 065
     Dates: start: 20111007, end: 20120325
  19. FLEXERIL [Concomitant]
     Dosage: 10 MG, UNK
  20. LANTUS [Concomitant]
     Dosage: 10 UL, QD
  21. LIDODERM [Concomitant]
  22. LEVOCETIRIZINE DIHYDROCHLORIDE [Concomitant]
     Dosage: 5 MG, UNK
  23. NIASPAN [Concomitant]
     Dosage: 500 MG, UNK
  24. PROTONIX [Concomitant]
     Dosage: 40 MG, UNK
  25. SINGULAIR [Concomitant]
     Dosage: 10 MG, UNK
  26. DILTIAZEM [Concomitant]
     Dosage: 240 MG, UNK

REACTIONS (4)
  - ARTHRALGIA [None]
  - DRY THROAT [None]
  - MONOPARESIS [None]
  - OSTEONECROSIS [None]
